FAERS Safety Report 4674575-1 (Version None)
Quarter: 2005Q2

REPORT INFORMATION
  Report Type: 
  Country: None (occurrence: None)
  Receive Date: 20050525
  Receipt Date: 20050429
  Transmission Date: 20051028
  Serious: Yes (Hospitalization)
  Sender: FDA-Public Use
  Company Number: 20050400114

PATIENT
  Age: 83 Year
  Sex: Male

DRUGS (1)
  1. PROMETHAZINE [Suspect]
     Indication: NAUSEA
     Dosage: 6.25 MG ONCE, IV
     Route: 042
     Dates: start: 20050419

REACTIONS (11)
  - COGNITIVE DISORDER [None]
  - CONDITION AGGRAVATED [None]
  - CONFUSIONAL STATE [None]
  - EXTRASYSTOLES [None]
  - INFARCTION [None]
  - LOSS OF CONSCIOUSNESS [None]
  - MUSCLE RIGIDITY [None]
  - NUCHAL RIGIDITY [None]
  - PNEUMONIA [None]
  - RESPIRATORY RATE INCREASED [None]
  - SPEECH DISORDER [None]
